FAERS Safety Report 18800169 (Version 3)
Quarter: 2021Q1

REPORT INFORMATION
  Report Type: Report from Study
  Country: None (occurrence: PA)
  Receive Date: 20210128
  Receipt Date: 20210130
  Transmission Date: 20210419
  Serious: Yes (Death, Hospitalization)
  Sender: FDA-Public Use
  Company Number: PA-ABBVIE-21K-125-3747344-00

PATIENT
  Age: 66 Year
  Sex: Male

DRUGS (1)
  1. HUMIRA [Suspect]
     Active Substance: ADALIMUMAB
     Indication: PSORIASIS
     Route: 058
     Dates: start: 20190813, end: 20201215

REACTIONS (3)
  - Immunodeficiency [Not Recovered/Not Resolved]
  - Psoriasis [Fatal]
  - COVID-19 [Fatal]

NARRATIVE: CASE EVENT DATE: 202101
